FAERS Safety Report 23747761 (Version 4)
Quarter: 2024Q4

REPORT INFORMATION
  Report Type: Spontaneous
  Country: CA (occurrence: CA)
  Receive Date: 20240416
  Receipt Date: 20241211
  Transmission Date: 20250115
  Serious: Yes (Other)
  Sender: PFIZER
  Company Number: CA-PFIZER INC-202400086285

PATIENT
  Age: 40 Year
  Sex: Male

DRUGS (4)
  1. ABRILADA [Suspect]
     Active Substance: ADALIMUMAB-AFZB
     Indication: Crohn^s disease
     Dosage: 40 MG, EVERY 2 WEEKS
     Route: 058
     Dates: start: 20230805, end: 2024
  2. ABRILADA [Suspect]
     Active Substance: ADALIMUMAB-AFZB
     Dosage: 40 MG, EVERY 2 WEEKS (40 MG, WEEKLY)
     Route: 058
     Dates: start: 2024
  3. DIAZEPAM [Concomitant]
     Active Substance: DIAZEPAM
     Dosage: 15 MG
  4. FENTANYL [Concomitant]
     Active Substance: FENTANYL
     Dosage: 150 UG

REACTIONS (5)
  - Ileocolectomy [Unknown]
  - Mucosal ulceration [Unknown]
  - Off label use [Unknown]
  - Product dose omission issue [Unknown]
  - Inappropriate schedule of product administration [Unknown]

NARRATIVE: CASE EVENT DATE: 20240101
